FAERS Safety Report 10871334 (Version 1)
Quarter: 2015Q1

REPORT INFORMATION
  Report Type: Spontaneous
  Country: US (occurrence: US)
  Receive Date: 20150226
  Receipt Date: 20150226
  Transmission Date: 20150721
  Serious: No
  Sender: FDA-Public Use
  Company Number: US-ELI_LILLY_AND_COMPANY-US201311005366

PATIENT
  Age: 62 Year
  Sex: Male

DRUGS (1)
  1. AXIRON [Suspect]
     Active Substance: TESTOSTERONE
     Indication: BLOOD TESTOSTERONE DECREASED
     Dosage: UNK MG, QD
     Route: 061
     Dates: start: 201308

REACTIONS (4)
  - Incorrect dose administered [Unknown]
  - Chest pain [Unknown]
  - Drug administered at inappropriate site [Unknown]
  - Furuncle [Unknown]

NARRATIVE: CASE EVENT DATE: 201310
